FAERS Safety Report 6545165-0 (Version None)
Quarter: 2010Q1

REPORT INFORMATION
  Report Type: 
  Country: None (occurrence: None)
  Receive Date: 20100121
  Receipt Date: 20081203
  Transmission Date: 20100710
  Serious: No
  Sender: FDA-Public Use
  Company Number: US-KINGPHARMUSA00001-K200801375

PATIENT
  Age: 28 Year
  Sex: Female

DRUGS (1)
  1. EPIPEN JR. [Suspect]
     Dosage: 0.15 MG, SINGLE
     Dates: start: 20081203, end: 20081203

REACTIONS (6)
  - ACCIDENTAL EXPOSURE [None]
  - EXPIRED DRUG ADMINISTERED [None]
  - INJECTION SITE PAIN [None]
  - INJECTION SITE PALLOR [None]
  - PAIN [None]
  - PANIC ATTACK [None]
